FAERS Safety Report 26028401 (Version 1)
Quarter: 2025Q4

REPORT INFORMATION
  Report Type: Spontaneous
  Country: US (occurrence: US)
  Receive Date: 20251111
  Receipt Date: 20251111
  Transmission Date: 20260118
  Serious: Yes (Other)
  Sender: GE HEALTHCARE
  Company Number: US-GE HEALTHCARE-2025CSU015454

PATIENT
  Age: 78 Year
  Sex: Male
  Weight: 86.168 kg

DRUGS (15)
  1. VIZAMYL [Suspect]
     Active Substance: FLUTEMETAMOL F-18
     Indication: Positron emission tomogram
     Dosage: 166.5 MBQ, TOTAL
     Route: 042
     Dates: start: 20251031
  2. ALBUTEROL SULFATE [Concomitant]
     Active Substance: ALBUTEROL SULFATE
     Indication: Dyspnoea
     Dosage: 2 PUFFS, BY MONTH EVERY 4 HOURS AS NEEDED
     Route: 050
     Dates: start: 20250917
  3. DONEPEZIL [Concomitant]
     Active Substance: DONEPEZIL
     Dosage: 5 MG, QD
     Route: 048
     Dates: start: 20250914
  4. DONEPEZIL [Concomitant]
     Active Substance: DONEPEZIL
     Dosage: 10 MG, QD
     Dates: start: 202510
  5. ELIQUIS [Concomitant]
     Active Substance: APIXABAN
     Dosage: 5 MG, BID
     Route: 048
     Dates: start: 20250605
  6. GEMCITABINE [Concomitant]
     Active Substance: GEMCITABINE
     Dosage: UNK, QD
  7. FLUTICASONE [Concomitant]
     Active Substance: FLUTICASONE
     Dosage: 1 DF, BID
     Route: 050
     Dates: start: 20250905
  8. FLUTICASONE PROPIONATE [Concomitant]
     Active Substance: FLUTICASONE PROPIONATE
     Dosage: 1 DF, QD
     Route: 050
     Dates: start: 20250904
  9. FUROSEMIDE [Concomitant]
     Active Substance: FUROSEMIDE
     Dosage: 40 MG, QD
     Route: 048
     Dates: start: 20250923
  10. JARDIANCE [Concomitant]
     Active Substance: EMPAGLIFLOZIN
     Dosage: 10 MG, QD
     Route: 048
     Dates: start: 20250923
  11. LEVOTHYROXINE [Concomitant]
     Active Substance: LEVOTHYROXINE
     Dosage: 150 MG, QD
     Route: 048
     Dates: start: 20250923
  12. METOPROLOL SUCCINATE [Concomitant]
     Active Substance: METOPROLOL SUCCINATE
     Dosage: 25 MG, QD
     Route: 048
     Dates: start: 20250905
  13. MIDODRINE [Concomitant]
     Active Substance: MIDODRINE
     Dosage: 10 MG, BID
     Route: 048
     Dates: start: 20250923
  14. ROPINIROLE [Concomitant]
     Active Substance: ROPINIROLE
     Dosage: 5 MG, QD
     Route: 048
     Dates: start: 20250929
  15. SILODOSIN [Concomitant]
     Active Substance: SILODOSIN
     Dosage: 8 MG, QD
     Route: 048
     Dates: start: 20250922

REACTIONS (5)
  - Syncope [Recovered/Resolved]
  - Back pain [Recovered/Resolved]
  - Chest pain [Recovered/Resolved]
  - Pain in extremity [Recovered/Resolved]
  - Dyspnoea [Recovered/Resolved]

NARRATIVE: CASE EVENT DATE: 20251031
